FAERS Safety Report 16583355 (Version 4)
Quarter: 2020Q1

REPORT INFORMATION
  Report Type: Spontaneous
  Country: US (occurrence: US)
  Receive Date: 20190717
  Receipt Date: 20200122
  Transmission Date: 20200409
  Serious: No
  Sender: FDA-Public Use
  Company Number: US-PFIZER INC-2019224015

PATIENT
  Age: 58 Year
  Sex: Female

DRUGS (1)
  1. BOSULIF [Suspect]
     Active Substance: BOSUTINIB MONOHYDRATE
     Indication: GASTROINTESTINAL STROMAL TUMOUR
     Dosage: 500 MG, DAILY
     Route: 048
     Dates: start: 201901

REACTIONS (5)
  - Off label use [Unknown]
  - Amnesia [Unknown]
  - Product use in unapproved indication [Unknown]
  - Weight increased [Unknown]
  - Pruritus [Unknown]
